FAERS Safety Report 8410317-1 (Version None)
Quarter: 2012Q2

REPORT INFORMATION
  Report Type: 
  Country: None (occurrence: None)
  Receive Date: 20120605
  Receipt Date: 20120523
  Transmission Date: 20120825
  Serious: Yes (Other)
  Sender: FDA-Public Use
  Company Number: JP-PFIZER INC-2012132478

PATIENT
  Age: 87 Year
  Sex: Female

DRUGS (6)
  1. CELEBREX [Suspect]
     Dosage: UNK
     Route: 048
  2. NEUROTROPIN [Concomitant]
  3. ALDACTONE [Concomitant]
     Route: 048
  4. LASIX [Concomitant]
  5. LAFUTIDINE [Concomitant]
  6. LOXONIN [Interacting]

REACTIONS (6)
  - HALLUCINATION, VISUAL [None]
  - HALLUCINATION [None]
  - INADEQUATE ANALGESIA [None]
  - DRUG INTERACTION [None]
  - EYE OEDEMA [None]
  - GAIT DISTURBANCE [None]
